FAERS Safety Report 7922595-3 (Version None)
Quarter: 2011Q4

REPORT INFORMATION
  Report Type: 
  Country: None (occurrence: None)
  Receive Date: 20111117
  Receipt Date: 20110408
  Transmission Date: 20120403
  Serious: No
  Sender: FDA-Public Use
  Company Number: US-ALLERGAN-1014901US

PATIENT
  Age: 67 Year
  Sex: Male
  Weight: 60.771 kg

DRUGS (9)
  1. COMBIGAN [Suspect]
     Indication: GLAUCOMA
     Dosage: 2 GTT, UNK
     Dates: start: 20101104, end: 20110325
  2. HYDROCHLOROTHIAZIDE [Concomitant]
     Dosage: 25 MG, QD
     Route: 048
  3. PRAVACHOL [Concomitant]
     Dosage: 80 MG, QHS
     Route: 048
  4. COMBIGAN [Suspect]
     Dosage: 2 GTT, BID
     Route: 047
     Dates: start: 20101001, end: 20101116
  5. AVODART [Concomitant]
     Dosage: 0.5 MG, QD
     Route: 048
  6. GLUCOPHAGE [Concomitant]
     Dosage: 500 MG, BID
     Route: 048
  7. XALATAN [Concomitant]
     Indication: GLAUCOMA
     Dosage: 1 GTT, QHS
     Route: 047
  8. POTASSIUM CHLORIDE [Concomitant]
     Dosage: 10 MEQ, QD
     Route: 048
  9. ACEON [Concomitant]
     Dosage: 8 MG, QD
     Route: 048

REACTIONS (4)
  - EYE IRRITATION [None]
  - DRY EYE [None]
  - OCULAR HYPERAEMIA [None]
  - BLOOD PRESSURE INCREASED [None]
